FAERS Safety Report 6659922-3 (Version None)
Quarter: 2010Q1

REPORT INFORMATION
  Report Type: 
  Country: None (occurrence: None)
  Receive Date: 20100326
  Receipt Date: 20100311
  Transmission Date: 20100710
  Serious: Yes (Hospitalization)
  Sender: FDA-Public Use
  Company Number: AUR-APL-2010-00768

PATIENT
  Age: 7 Year
  Sex: Male

DRUGS (8)
  1. ONDANSETRON [Suspect]
     Indication: PROPHYLAXIS OF NAUSEA AND VOMITING
     Dosage: 4MG - Q8 HOURS - ORAL
     Route: 048
  2. HYDROMORPHONE HCL [Concomitant]
  3. HYDROXYZINE [Concomitant]
  4. DIMENHYDRINATE [Concomitant]
  5. LORAZEPAM [Concomitant]
  6. RANITIDINE HCL [Concomitant]
  7. BISACODYL [Concomitant]
  8. DOCUSATE [Concomitant]

REACTIONS (5)
  - DYSKINESIA [None]
  - EXCESSIVE EYE BLINKING [None]
  - JAW DISORDER [None]
  - MOVEMENT DISORDER [None]
  - NERVOUS SYSTEM DISORDER [None]
